FAERS Safety Report 15720500 (Version 2)
Quarter: 2019Q1

REPORT INFORMATION
  Report Type: Spontaneous
  Country: CA (occurrence: CA)
  Receive Date: 20181213
  Receipt Date: 20190329
  Transmission Date: 20190417
  Serious: Yes (Other)
  Sender: FDA-Public Use
  Company Number: CA-ELI_LILLY_AND_COMPANY-CA201812001140

PATIENT

DRUGS (5)
  1. ZYPREXA [Suspect]
     Active Substance: OLANZAPINE
     Indication: PRODUCT USED FOR UNKNOWN INDICATION
     Dosage: UNK UNK, UNKNOWN
     Route: 065
  2. INVEGA [Suspect]
     Active Substance: PALIPERIDONE
     Indication: PRODUCT USED FOR UNKNOWN INDICATION
     Dosage: UNK, UNKNOWN
     Route: 065
  3. ZUCLOPENTHIXOL [Suspect]
     Active Substance: ZUCLOPENTHIXOL
     Indication: PRODUCT USED FOR UNKNOWN INDICATION
     Dosage: UNK UNK, UNKNOWN
     Route: 065
  4. ZYPREXA [Suspect]
     Active Substance: OLANZAPINE
     Dosage: UNK
  5. ZYPREXA [Suspect]
     Active Substance: OLANZAPINE
     Indication: PSYCHOTIC BEHAVIOUR
     Dosage: UNK, UNKNOWN
     Route: 065

REACTIONS (11)
  - Brain injury [Unknown]
  - Diabetes mellitus [Unknown]
  - Generalised tonic-clonic seizure [Unknown]
  - Fibromyalgia [Unknown]
  - Headache [Unknown]
  - Anger [Unknown]
  - Terminal state [Unknown]
  - Gastric ulcer [Unknown]
  - Hormone level abnormal [Unknown]
  - Post-traumatic stress disorder [Unknown]
  - Seizure [Unknown]

NARRATIVE: CASE EVENT DATE: 2001
